FAERS Safety Report 5163721-1 (Version None)
Quarter: 2006Q4

REPORT INFORMATION
  Report Type: 
  Country: None (occurrence: None)
  Receive Date: 20061204
  Receipt Date: 20061120
  Transmission Date: 20070319
  Serious: Yes (Life-Threatening)
  Sender: FDA-Public Use
  Company Number: PL-GLAXOSMITHKLINE-B0447831A

PATIENT
  Age: 13 Year
  Sex: Male
  Weight: 47 kg

DRUGS (4)
  1. ZINACEF [Suspect]
     Indication: PNEUMONIA
     Dosage: 1.5G TWICE PER DAY
     Route: 042
     Dates: start: 20061117, end: 20061118
  2. EXPECTORANT [Concomitant]
     Dates: start: 20061117
  3. UNSPECIFIED MEDICATION [Concomitant]
     Route: 042
     Dates: start: 20061117
  4. METAMIZOL [Concomitant]
     Dosage: 750MG SINGLE DOSE
     Route: 042
     Dates: start: 20061117

REACTIONS (11)
  - ANAPHYLACTIC SHOCK [None]
  - BLOOD PRESSURE DECREASED [None]
  - CHILLS [None]
  - CYANOSIS [None]
  - HEART RATE DECREASED [None]
  - HYPERHIDROSIS [None]
  - OXYGEN SATURATION DECREASED [None]
  - RESPIRATORY RATE DECREASED [None]
  - SHOCK [None]
  - VISUAL DISTURBANCE [None]
  - VOMITING [None]
